FAERS Safety Report 8190532-5 (Version None)
Quarter: 2012Q1

REPORT INFORMATION
  Report Type: 
  Country: None (occurrence: None)
  Receive Date: 20120221
  Receipt Date: 20111212
  Transmission Date: 20120608
  Serious: No
  Sender: FDA-Public Use
  Company Number: 1000026197

PATIENT
  Age: 59 Year
  Sex: Female

DRUGS (1)
  1. VIIBRYD [Suspect]
     Indication: DEPRESSION
     Dosage: 5 MG (5 MG, 1 IN 1 D), ORAL
     Route: 048
     Dates: start: 20111210

REACTIONS (4)
  - PSYCHOMOTOR HYPERACTIVITY [None]
  - DIARRHOEA [None]
  - NAUSEA [None]
  - INSOMNIA [None]
